FAERS Safety Report 4263254-0 (Version None)
Quarter: 2004Q1

REPORT INFORMATION
  Report Type: 
  Country: None (occurrence: None)
  Receive Date: 20040104
  Receipt Date: 20040104
  Transmission Date: 20041129
  Serious: Yes (Other)
  Sender: FDA-Public Use
  Company Number: None

PATIENT
  Age: 57 Year
  Sex: Female
  Weight: 58.0604 kg

DRUGS (1)
  1. BEXTRA [Suspect]
     Indication: PAIN IN EXTREMITY
     Dosage: 5MG 1/DAY ORAL
     Route: 048
     Dates: start: 20030218, end: 20030222

REACTIONS (3)
  - ASTHENIA [None]
  - DISORIENTATION [None]
  - ORTHOSTATIC HYPOTENSION [None]
